FAERS Safety Report 8598724-8 (Version None)
Quarter: 2012Q3

REPORT INFORMATION
  Report Type: 
  Country: None (occurrence: None)
  Receive Date: 20120803
  Receipt Date: 20120723
  Transmission Date: 20120928
  Serious: Yes (Other)
  Sender: FDA-Public Use
  Company Number: AUR-APL-2012-03296

PATIENT
  Age: 70 Year
  Sex: Female

DRUGS (18)
  1. LIPITOR [Suspect]
     Indication: PRODUCT USED FOR UNKNOWN INDICATION
     Dosage: (20 MG)
     Dates: start: 20030527
  2. AVANDIA [Suspect]
     Indication: PRODUCT USED FOR UNKNOWN INDICATION
     Dosage: 8 MG (4 MG, 2 IN 1 D)
     Dates: start: 20021008
  3. VESICARE [Suspect]
     Indication: PRODUCT USED FOR UNKNOWN INDICATION
  4. PRED-G [Suspect]
     Indication: PRODUCT USED FOR UNKNOWN INDICATION
  5. METFFORMIN HYDROCHLORIDE [Suspect]
     Indication: PRODUCT USED FOR UNKNOWN INDICATION
     Dosage: 1000 MG (500 MG, 2 IN 1 D)
     Dates: start: 20080724
  6. DAYPRO [Suspect]
     Indication: PRODUCT USED FOR UNKNOWN INDICATION
  7. HYDROMORPHONE HCL [Suspect]
     Indication: PRODUCT USED FOR UNKNOWN INDICATION
  8. ALLEGRA [Suspect]
     Indication: PRODUCT USED FOR UNKNOWN INDICATION
     Dosage: (60 MG)
  9. VICODIN [Suspect]
     Indication: PRODUCT USED FOR UNKNOWN INDICATION
  10. CELEBREX [Suspect]
     Indication: PRODUCT USED FOR UNKNOWN INDICATION
  11. PATADAY [Suspect]
     Indication: PRODUCT USED FOR UNKNOWN INDICATION
     Dosage: DAILY, OPHTHALMIC
     Route: 047
     Dates: start: 20101102
  12. PROMETHAZINE [Suspect]
     Indication: PRODUCT USED FOR UNKNOWN INDICATION
  13. SYSTANE (RHINARIS) [Suspect]
     Indication: PRODUCT USED FOR UNKNOWN INDICATION
  14. AMARYL [Suspect]
     Indication: PRODUCT USED FOR UNKNOWN INDICATION
     Dosage: 8 MG (4 MG, 2 IN 1 D)
     Dates: start: 20020803
  15. PROMETHAZINE [Suspect]
     Indication: NAUSEA
     Dosage: (12.5 MG), ORAL
     Route: 048
     Dates: start: 20120618
  16. MOBIC [Suspect]
     Indication: PRODUCT USED FOR UNKNOWN INDICATION
     Dosage: (7.5 MG)
     Dates: start: 20120618
  17. MOXIFLOXACIN HCL [Suspect]
     Indication: PRODUCT USED FOR UNKNOWN INDICATION
  18. OXYCODONE HCL [Suspect]
     Indication: PRODUCT USED FOR UNKNOWN INDICATION

REACTIONS (2)
  - RASH PRURITIC [None]
  - HYPERSENSITIVITY [None]
